FAERS Safety Report 12410839 (Version 1)
Quarter: 2016Q2

REPORT INFORMATION
  Report Type: Report from Study
  Country: US (occurrence: US)
  Receive Date: 20160527
  Receipt Date: 20160527
  Transmission Date: 20160815
  Serious: No
  Sender: FDA-Public Use
  Company Number: US-AMGEN-USASL2016067017

PATIENT
  Age: 52 Year
  Sex: Female

DRUGS (1)
  1. ENBREL [Suspect]
     Active Substance: ETANERCEPT
     Indication: PRODUCT USED FOR UNKNOWN INDICATION
     Dosage: UNK
     Route: 065

REACTIONS (7)
  - Platelet count decreased [Recovered/Resolved]
  - Asthenia [Recovering/Resolving]
  - Feeling cold [Recovering/Resolving]
  - Rosacea [Unknown]
  - Diarrhoea [Recovering/Resolving]
  - Injection site rash [Recovering/Resolving]
  - Increased tendency to bruise [Recovering/Resolving]
